FAERS Safety Report 21264614 (Version 1)
Quarter: 2022Q3

REPORT INFORMATION
  Report Type: Spontaneous
  Country: US (occurrence: None)
  Receive Date: 20220826
  Receipt Date: 20220826
  Transmission Date: 20221027
  Serious: No
  Sender: FDA-Public Use
  Company Number: None

PATIENT
  Age: 63 Year
  Sex: Male
  Weight: 117.93 kg

DRUGS (13)
  1. ABIRATERONE [Suspect]
     Active Substance: ABIRATERONE
     Indication: Prostate cancer
     Dosage: FREQUENCY : DAILY;?
     Route: 048
     Dates: start: 20220604
  2. ABIRATERONE [Concomitant]
  3. ALLOPURINOL [Concomitant]
     Active Substance: ALLOPURINOL
  4. AZITHIOPRINE [Concomitant]
  5. FLUTIASONE [Concomitant]
  6. FOLIC ACID [Concomitant]
  7. IBUPROFEN [Concomitant]
  8. LISINOPRIL-HYDROCHLORTHIAZIDE [Concomitant]
  9. METHOTREXATE [Concomitant]
  10. PREDNISONE [Concomitant]
     Active Substance: PREDNISONE
  11. SYNTHROID [Concomitant]
  12. TAMSULOSIN [Concomitant]
     Active Substance: TAMSULOSIN
  13. WARFARIN [Concomitant]

REACTIONS (1)
  - SARS-CoV-2 test positive [None]

NARRATIVE: CASE EVENT DATE: 20220825
